FAERS Safety Report 11977015 (Version 1)
Quarter: 2016Q1

REPORT INFORMATION
  Report Type: Spontaneous
  Country: US (occurrence: None)
  Receive Date: 20160128
  Receipt Date: 20160128
  Transmission Date: 20160526
  Serious: No
  Sender: FDA-Public Use
  Company Number: None

PATIENT

DRUGS (2)
  1. DRY EYE OMEGA BENEFITS 2220 MG EPA/DHA PRN [Suspect]
     Active Substance: DIETARY SUPPLEMENT
     Indication: NUTRITIONAL SUPPLEMENTATION
     Route: 048
  2. TACROLIMUS. [Suspect]
     Active Substance: TACROLIMUS

REACTIONS (3)
  - Blood creatinine increased [None]
  - Drug level increased [None]
  - Dehydration [None]

NARRATIVE: CASE EVENT DATE: 20141215
